FAERS Safety Report 4795177-2 (Version None)
Quarter: 2005Q3

REPORT INFORMATION
  Report Type: 
  Country: None (occurrence: None)
  Receive Date: 20050919
  Receipt Date: 20050708
  Transmission Date: 20060218
  Serious: Yes (Hospitalization, Other)
  Sender: FDA-Public Use
  Company Number: US-JNJFOC-20050303412

PATIENT
  Age: 34 Year
  Sex: Female
  Weight: 107.9561 kg

DRUGS (2)
  1. ORTHO TRI-CYCLEN LO [Suspect]
     Indication: CONTRACEPTION
     Dosage: 1 DOSE(S), 1 IN 1 DAY, ORAL
     Route: 048
     Dates: start: 20041221, end: 20050303
  2. ALLEGRA D (ALLEGRA-D) [Concomitant]

REACTIONS (1)
  - THROMBOSIS [None]
